FAERS Safety Report 4494237-3 (Version None)
Quarter: 2004Q4

REPORT INFORMATION
  Report Type: 
  Country: None (occurrence: None)
  Receive Date: 20041102
  Receipt Date: 20040923
  Transmission Date: 20050328
  Serious: Yes (Hospitalization)
  Sender: FDA-Public Use
  Company Number: F01200402890

PATIENT
  Age: 63 Year
  Sex: Male

DRUGS (9)
  1. OXALIPLATIN [Suspect]
     Indication: COLORECTAL CANCER METASTATIC
     Dosage: 164 MG Q2W INTRAVENOUS NOS
     Route: 042
  2. FLUOROURACIL [Suspect]
     Dosage: 772 MG IV BOLUS AND 1158 MG IV CONTINUOUS INFUSION, Q2W INTRAVENOUS NOS
     Route: 042
  3. LEUCOVORIN [Suspect]
     Dosage: 386 MG Q2W INTRAVENOUS NOS
     Route: 042
  4. RISPERDAL [Concomitant]
  5. EFFEXOR [Concomitant]
  6. DILAUDID [Concomitant]
  7. SENOKOT [Concomitant]
  8. COLACE             (DOCUSATE SODIUM) [Concomitant]
  9. IMODIUM [Concomitant]

REACTIONS (3)
  - INTERNATIONAL NORMALISED RATIO INCREASED [None]
  - PROTHROMBIN TIME PROLONGED [None]
  - PULMONARY EMBOLISM [None]
